FAERS Safety Report 5520348-7 (Version None)
Quarter: 2007Q4

REPORT INFORMATION
  Report Type: 
  Country: None (occurrence: None)
  Receive Date: 20071119
  Receipt Date: 20071115
  Transmission Date: 20080405
  Serious: Yes (Other)
  Sender: FDA-Public Use
  Company Number: GB-BAYER-200711192BNE

PATIENT
  Age: 60 Year
  Sex: Male
  Weight: 73 kg

DRUGS (5)
  1. CIPROFLOXACIN [Suspect]
     Indication: URINARY TRACT INFECTION
     Route: 048
     Dates: start: 20070921, end: 20070928
  2. ATENOLOL [Concomitant]
     Indication: HYPERTENSION
     Dosage: UNIT DOSE: 50 MG
     Route: 048
     Dates: start: 20070904
  3. DONEPEZIL HCL [Concomitant]
     Indication: DEMENTIA
     Dosage: TOTAL DAILY DOSE: 5 MG
     Route: 048
     Dates: start: 20070904
  4. MEMANTINE HCL [Concomitant]
     Indication: DEMENTIA
     Dosage: TOTAL DAILY DOSE: 20 MG
     Route: 048
     Dates: start: 20070904, end: 20070911
  5. SULPIRIDE [Concomitant]
     Indication: DEMENTIA
     Dosage: TOTAL DAILY DOSE: 800 MG
     Route: 048
     Dates: start: 20070907

REACTIONS (1)
  - PEMPHIGOID [None]
